FAERS Safety Report 16634347 (Version 1)
Quarter: 2019Q3

REPORT INFORMATION
  Report Type: Spontaneous
  Country: US (occurrence: US)
  Receive Date: 20190726
  Receipt Date: 20190726
  Transmission Date: 20191004
  Serious: No
  Sender: FDA-Public Use
  Company Number: US-ASTRAZENECA-2019SE95772

PATIENT
  Sex: Female

DRUGS (1)
  1. BRILINTA [Suspect]
     Active Substance: TICAGRELOR
     Route: 048

REACTIONS (12)
  - Nerve compression [Unknown]
  - Mental disorder [Unknown]
  - Neuropathy peripheral [Unknown]
  - Mouth haemorrhage [Unknown]
  - Cardiac disorder [Unknown]
  - Pain [Unknown]
  - Contusion [Unknown]
  - Blood urine present [Unknown]
  - Haematochezia [Unknown]
  - Gastric haemorrhage [Unknown]
  - Haematoma [Unknown]
  - Back pain [Unknown]
